FAERS Safety Report 13438730 (Version 1)
Quarter: 2017Q2

REPORT INFORMATION
  Report Type: Spontaneous
  Country: SE (occurrence: SE)
  Receive Date: 20170413
  Receipt Date: 20170413
  Transmission Date: 20170830
  Serious: Yes (Other)
  Sender: FDA-Public Use
  Company Number: SE-MALLINCKRODT-T201701466

PATIENT
  Age: 12 Year
  Sex: Male
  Weight: 27 kg

DRUGS (5)
  1. ANTICOAGULANT CITRATE PHOSPHATE DEXTROSE ADEN [Concomitant]
     Indication: ANTICOAGULANT THERAPY
     Dosage: UNK
     Dates: start: 20170123, end: 20170125
  2. UVADEX [Suspect]
     Active Substance: METHOXSALEN
     Dosage: UNK
     Route: 057
     Dates: start: 20170321, end: 20170323
  3. INSULIN [Concomitant]
     Active Substance: INSULIN NOS
     Dosage: UNK
     Dates: start: 20170322
  4. UVADEX [Suspect]
     Active Substance: METHOXSALEN
     Indication: HEART TRANSPLANT REJECTION
     Dosage: UNK
     Route: 057
     Dates: start: 20170123, end: 20170125
  5. INSULIN [Concomitant]
     Active Substance: INSULIN NOS
     Indication: DIABETES MELLITUS
     Dosage: UNK
     Dates: start: 20170317

REACTIONS (1)
  - Hyperkalaemia [Unknown]

NARRATIVE: CASE EVENT DATE: 20170321
